FAERS Safety Report 8809200 (Version 1)
Quarter: 2012Q4

REPORT INFORMATION
  Report Type: 
  Country: AR (occurrence: AR)
  Receive Date: 20120926
  Receipt Date: 20120926
  Transmission Date: 20130627
  Serious: Yes (Other)
  Sender: FDA-Public Use
  Company Number: PHHY2012AR082518

PATIENT
  Sex: Female

DRUGS (1)
  1. ONBREZ [Suspect]
     Indication: LUNG DISORDER
     Dosage: 300 ug, QD
     Dates: start: 201208

REACTIONS (3)
  - Intestinal haemorrhage [Recovered/Resolved]
  - Tachycardia [Recovered/Resolved]
  - Drug ineffective [Unknown]
